FAERS Safety Report 8582274-9 (Version None)
Quarter: 2012Q3

REPORT INFORMATION
  Report Type: 
  Country: None (occurrence: None)
  Receive Date: 20120809
  Receipt Date: 20120803
  Transmission Date: 20120928
  Serious: Yes (Death, Other)
  Sender: FDA-Public Use
  Company Number: US-GENZYME-CLOF-1002247

PATIENT
  Sex: Male

DRUGS (3)
  1. CYTARABINE [Concomitant]
     Indication: BONE MARROW CONDITIONING REGIMEN
     Dosage: UNK
     Route: 065
  2. CLOFARABINE [Suspect]
     Indication: BONE MARROW CONDITIONING REGIMEN
     Dosage: 52 MG/M2, UNK
     Route: 065
     Dates: start: 20120724, end: 20120729
  3. TOTAL BODY IRRADIATION [Concomitant]
     Indication: BONE MARROW CONDITIONING REGIMEN
     Dosage: UNK
     Route: 065

REACTIONS (11)
  - CONVULSION [None]
  - CARDIAC ARREST [None]
  - BLOOD PRESSURE DECREASED [None]
  - CLOSTRIDIAL INFECTION [None]
  - NEUTROPENIA [None]
  - DEATH [None]
  - ABDOMINAL PAIN [None]
  - ACIDOSIS [None]
  - HYPOPERFUSION [None]
  - TACHYCARDIA [None]
  - DIARRHOEA [None]
